FAERS Safety Report 7790426-0 (Version None)
Quarter: 2011Q3

REPORT INFORMATION
  Report Type: 
  Country: None (occurrence: None)
  Receive Date: 20110930
  Receipt Date: 20110929
  Transmission Date: 20111222
  Serious: Yes (Hospitalization)
  Sender: FDA-Public Use
  Company Number: JP-PFIZER INC-2011230515

PATIENT
  Age: 39 Year
  Sex: Female

DRUGS (7)
  1. LOXONIN [Concomitant]
     Dosage: UNK
  2. RABEPRAZOLE SODIUM [Concomitant]
     Dosage: 10 MG, 1X/DAY
  3. CADUET [Suspect]
     Indication: HYPERTENSION
     Dosage: AMLODIPINE BESILATE 5 MG/ATORVASTATIN 10 MG, FREQUENCY UNKNOWN
     Route: 048
     Dates: start: 20110826, end: 20110920
  4. LANTUS [Concomitant]
     Dosage: UNK
  5. LYRICA [Concomitant]
     Dosage: 150 MG, 1X/DAY
  6. CADUET [Suspect]
     Indication: HYPERCHOLESTEROLAEMIA
  7. MUCOSTA [Concomitant]
     Dosage: UNK

REACTIONS (1)
  - HEPATIC FUNCTION ABNORMAL [None]
